FAERS Safety Report 23070144 (Version 2)
Quarter: 2024Q4

REPORT INFORMATION
  Report Type: Report from Study
  Country: MX (occurrence: MX)
  Receive Date: 20231016
  Receipt Date: 20241224
  Transmission Date: 20250115
  Serious: Yes (Other)
  Sender: SANOFI AVENTIS
  Company Number: MX-SA-SAC20230215000671

PATIENT
  Age: 23 Year
  Sex: Male

DRUGS (2)
  1. ALEMTUZUMAB [Suspect]
     Active Substance: ALEMTUZUMAB
     Indication: Multiple sclerosis
     Dosage: UNK
     Dates: start: 20220903
  2. ALEMTUZUMAB [Suspect]
     Active Substance: ALEMTUZUMAB
     Dosage: UNK
     Dates: start: 20231002, end: 20231005

REACTIONS (9)
  - Bradycardia [Recovered/Resolved]
  - Arrhythmia [Recovered/Resolved]
  - Stress [Unknown]
  - Alopecia areata [Unknown]
  - Thyroid disorder [Unknown]
  - Pharyngitis [Unknown]
  - Dry throat [Unknown]
  - Increased viscosity of upper respiratory secretion [Unknown]
  - Throat tightness [Unknown]

NARRATIVE: CASE EVENT DATE: 20230201
